FAERS Safety Report 22907460 (Version 2)
Quarter: 2024Q3

REPORT INFORMATION
  Report Type: Spontaneous
  Country: US (occurrence: US)
  Receive Date: 20230905
  Receipt Date: 20240829
  Transmission Date: 20241016
  Serious: Yes (Life-Threatening, Other)
  Sender: AMERICAN REGENT
  Company Number: US-AMERICAN REGENT INC-2023000615

PATIENT
  Sex: Female
  Weight: 48.163 kg

DRUGS (1)
  1. FERRIC CARBOXYMALTOSE [Suspect]
     Active Substance: FERRIC CARBOXYMALTOSE
     Indication: Iron deficiency anaemia
     Dosage: UNK UNKNOWN
     Route: 065

REACTIONS (1)
  - Hypophosphataemia [Recovered/Resolved]
